FAERS Safety Report 22240538 (Version 1)
Quarter: 2023Q2

REPORT INFORMATION
  Report Type: Spontaneous
  Country: CH (occurrence: CH)
  Receive Date: 20230421
  Receipt Date: 20230421
  Transmission Date: 20230722
  Serious: Yes (Other)
  Sender: FDA-Public Use
  Company Number: None

PATIENT
  Age: 54 Year
  Sex: Male

DRUGS (4)
  1. DARZALEX [Suspect]
     Active Substance: DARATUMUMAB
     Indication: Light chain disease
     Route: 058
     Dates: start: 20230403, end: 20230403
  2. ATACAND [Concomitant]
     Active Substance: CANDESARTAN CILEXETIL
     Route: 048
  3. HERBALS [Concomitant]
     Active Substance: HERBALS
     Dosage: 5 CUILLERES A CAFE DILUE DANS 1L DEAU 1X/JOUR
     Route: 048
     Dates: start: 202302
  4. NONI JUICE [Concomitant]
     Active Substance: NONI FRUIT JUICE
     Route: 048
     Dates: start: 202302

REACTIONS (3)
  - Chest pain [Recovering/Resolving]
  - Bundle branch block right [Recovering/Resolving]
  - Off label use [Unknown]

NARRATIVE: CASE EVENT DATE: 20230403
